FAERS Safety Report 10157164 (Version 1)
Quarter: 2014Q2

REPORT INFORMATION
  Report Type: Spontaneous
  Country: CA (occurrence: CA)
  Receive Date: 20140507
  Receipt Date: 20140507
  Transmission Date: 20141212
  Serious: Yes (Hospitalization, Disabling)
  Sender: FDA-Public Use
  Company Number: CA-B.I. PHARMACEUTICALS,INC./RIDGEFIELD-2014-BI-19719CN

PATIENT
  Age: 76 Year
  Sex: Male
  Weight: 67 kg

DRUGS (16)
  1. PRADAXA [Suspect]
     Indication: PRODUCT USED FOR UNKNOWN INDICATION
     Dosage: 220 MG
     Route: 048
  2. DILANTIN [Suspect]
     Indication: PRODUCT USED FOR UNKNOWN INDICATION
     Dosage: 128.5714 MG
     Route: 048
  3. DILANTIN [Suspect]
     Dosage: 228.5714 MG
     Route: 048
  4. ATORVASTATIN [Concomitant]
     Route: 065
  5. BETAMETHASONE [Concomitant]
     Route: 065
  6. CALTRATE 600 WITH VITAMIN D [Concomitant]
     Route: 065
  7. COENZYME Q10 [Concomitant]
     Route: 065
  8. EZETROL [Concomitant]
     Route: 065
  9. HYDROMORPHONE [Concomitant]
     Route: 065
  10. HYOSCINE [Concomitant]
     Route: 065
  11. LACTULOSE SYRUP [Concomitant]
     Route: 065
  12. LORAZEPAM [Concomitant]
     Route: 065
  13. MULTIVITAMINS [Concomitant]
     Route: 065
  14. RISEDRONATE [Concomitant]
     Route: 065
  15. SILDENAFIL [Concomitant]
     Route: 065
  16. TESTOSTERONE [Concomitant]
     Route: 065

REACTIONS (5)
  - Cerebral infarction [Recovered/Resolved with Sequelae]
  - Cerebrovascular accident [Recovered/Resolved with Sequelae]
  - Deafness [Recovered/Resolved with Sequelae]
  - Drug interaction [Recovered/Resolved with Sequelae]
  - Tinnitus [Recovered/Resolved with Sequelae]
